FAERS Safety Report 9304556 (Version 2)
Quarter: 2013Q3

REPORT INFORMATION
  Report Type: Spontaneous
  Country: US (occurrence: US)
  Receive Date: 20130523
  Receipt Date: 20130704
  Transmission Date: 20140515
  Serious: No
  Sender: FDA-Public Use
  Company Number: US-009507513-1305USA012441

PATIENT
  Age: 83 Year
  Sex: Female
  Weight: 69.84 kg

DRUGS (1)
  1. NEXPLANON [Suspect]
     Indication: CONTRACEPTION
     Dosage: 1 DF, UNK
     Route: 059
     Dates: start: 20130328, end: 201304

REACTIONS (3)
  - Implant site irritation [Recovered/Resolved]
  - Discomfort [Recovered/Resolved]
  - Device deployment issue [Unknown]
